FAERS Safety Report 7062112-6 (Version None)
Quarter: 2010Q4

REPORT INFORMATION
  Report Type: 
  Country: None (occurrence: None)
  Receive Date: 20101026
  Receipt Date: 20101014
  Transmission Date: 20110411
  Serious: Yes (Hospitalization)
  Sender: FDA-Public Use
  Company Number: PHHY2010NL68923

PATIENT
  Sex: Male

DRUGS (3)
  1. ZOMETA [Suspect]
     Dosage: 4 MG/5 ML
     Dates: start: 20081113
  2. ZOMETA [Suspect]
     Dosage: UNK
     Dates: start: 20100914
  3. ZOMETA [Suspect]
     Dosage: UNK
     Dates: start: 20101014

REACTIONS (4)
  - ACTIVITIES OF DAILY LIVING IMPAIRED [None]
  - MUSCULAR WEAKNESS [None]
  - NEOPLASM [None]
  - NEOPLASM PROGRESSION [None]
